FAERS Safety Report 8601168-3 (Version None)
Quarter: 2012Q3

REPORT INFORMATION
  Report Type: 
  Country: None (occurrence: None)
  Receive Date: 20120817
  Receipt Date: 20120814
  Transmission Date: 20120928
  Serious: Yes (Hospitalization, Other)
  Sender: FDA-Public Use
  Company Number: PHEH2012US014931

PATIENT
  Sex: Female
  Weight: 66.213 kg

DRUGS (3)
  1. DIOVAN [Concomitant]
     Dosage: 1 DF (80 MG), DAILY
     Route: 048
     Dates: start: 20110101
  2. EXELON [Suspect]
     Indication: DEMENTIA
     Dosage: 9.5 MG / 24 HS
     Route: 062
     Dates: start: 20120301, end: 20120706
  3. ACETYLSALICYLIC ACID ENTERIC COATED [Concomitant]

REACTIONS (6)
  - OESOPHAGITIS [None]
  - GASTRITIS [None]
  - GASTRIC HAEMORRHAGE [None]
  - VOMITING [None]
  - HAEMOGLOBIN DECREASED [None]
  - MUCOSAL EROSION [None]
